FAERS Safety Report 14951110 (Version 1)
Quarter: 2018Q2

REPORT INFORMATION
  Report Type: Spontaneous
  Country: CH (occurrence: CH)
  Receive Date: 20180530
  Receipt Date: 20180530
  Transmission Date: 20180711
  Serious: Yes (Death, Hospitalization)
  Sender: FDA-Public Use
  Company Number: CH-ASTRAZENECA-2018SE69032

PATIENT
  Age: 39 Year
  Sex: Female

DRUGS (2)
  1. ABILIFY [Suspect]
     Active Substance: ARIPIPRAZOLE
     Indication: SCHIZOPHRENIA
     Route: 048
  2. QUETIAPINE. [Suspect]
     Active Substance: QUETIAPINE
     Indication: SCHIZOPHRENIA
     Dosage: UNKNOWN
     Route: 048

REACTIONS (4)
  - Cardiac disorder [Unknown]
  - Emotional disorder [Unknown]
  - Cardiac failure [Fatal]
  - Weight increased [Unknown]
